FAERS Safety Report 20867328 (Version 2)
Quarter: 2022Q2

REPORT INFORMATION
  Report Type: Spontaneous
  Country: IN (occurrence: IN)
  Receive Date: 20220524
  Receipt Date: 20220525
  Transmission Date: 20220721
  Serious: No
  Sender: FDA-Public Use
  Company Number: IN-PFIZER INC-202200397708

PATIENT
  Age: 52 Year
  Sex: Female

DRUGS (3)
  1. PALBOCICLIB [Suspect]
     Active Substance: PALBOCICLIB
     Indication: Triple positive breast cancer
     Dosage: 125 MG, 1X/DAY
     Route: 048
     Dates: start: 202107
  2. HERSIMA [Concomitant]
  3. ZOLEDRONIC ACID [Concomitant]
     Active Substance: ZOLEDRONIC ACID
     Dosage: 4 MG

REACTIONS (6)
  - Neoplasm progression [Unknown]
  - Blood pressure increased [Unknown]
  - Pain [Unknown]
  - Emotional distress [Unknown]
  - Off label use [Unknown]
  - Product dose omission issue [Unknown]
